FAERS Safety Report 10159520 (Version 3)
Quarter: 2014Q2

REPORT INFORMATION
  Report Type: Spontaneous
  Country: GB (occurrence: GB)
  Receive Date: 20140508
  Receipt Date: 20140529
  Transmission Date: 20141212
  Serious: Yes (Hospitalization)
  Sender: FDA-Public Use
  Company Number: GB-MYLANLABS-2014S1009782

PATIENT
  Age: 31 Year
  Sex: Male

DRUGS (10)
  1. FLUOXETINE [Suspect]
     Indication: SCHIZOPHRENIA, PARANOID TYPE
     Dosage: 40 MG, ONCE A DAY
  2. FLUOXETINE [Suspect]
     Indication: PSYCHOTIC DISORDER
     Dosage: 40 MG, ONCE A DAY
  3. FLUOXETINE [Suspect]
     Indication: SCHIZOPHRENIA, PARANOID TYPE
  4. FLUOXETINE [Suspect]
     Indication: PSYCHOTIC DISORDER
  5. CLOZAPINE [Suspect]
     Indication: SCHIZOPHRENIA, PARANOID TYPE
     Dosage: UNK
  6. CLOZAPINE [Suspect]
     Indication: PSYCHOTIC DISORDER
     Dosage: UNK
  7. CLOZAPINE [Suspect]
     Indication: SCHIZOPHRENIA, PARANOID TYPE
     Dosage: 300 MG, UNK
  8. CLOZAPINE [Suspect]
     Indication: PSYCHOTIC DISORDER
     Dosage: 300 MG, UNK
  9. CLOZAPINE [Suspect]
     Indication: SCHIZOPHRENIA, PARANOID TYPE
     Dosage: 325 MG, ONCE A DAY
  10. CLOZAPINE [Suspect]
     Indication: PSYCHOTIC DISORDER
     Dosage: 325 MG, ONCE A DAY

REACTIONS (7)
  - Anxiety [Recovering/Resolving]
  - Feeling abnormal [Recovering/Resolving]
  - Hallucination [Recovering/Resolving]
  - Paranoia [Recovering/Resolving]
  - Incorrect dose administered [Unknown]
  - Psychotic disorder [Recovering/Resolving]
  - Sedation [Recovering/Resolving]
